FAERS Safety Report 7278024-9 (Version None)
Quarter: 2011Q1

REPORT INFORMATION
  Report Type: 
  Country: None (occurrence: None)
  Receive Date: 20110207
  Receipt Date: 20110131
  Transmission Date: 20110831
  Serious: Yes (Hospitalization, Other)
  Sender: FDA-Public Use
  Company Number: BR-MEDIMMUNE-MEDI-0012390

PATIENT
  Sex: Male
  Weight: 8.75 kg

DRUGS (1)
  1. SYNAGIS [Suspect]
     Route: 030
     Dates: start: 20100908, end: 20101009

REACTIONS (3)
  - BRONCHIOLITIS [None]
  - BRONCHOSPASM [None]
  - ENDOTRACHEAL INTUBATION [None]
